FAERS Safety Report 5841183-6 (Version None)
Quarter: 2008Q3

REPORT INFORMATION
  Report Type: 
  Country: None (occurrence: None)
  Receive Date: 20080731
  Receipt Date: 20080514
  Transmission Date: 20090109
  Serious: No
  Sender: FDA-Public Use
  Company Number: US200805003124

PATIENT

DRUGS (1)
  1. BYETTA [Suspect]
     Dosage: SUBCUTANEOUS
     Route: 058

REACTIONS (1)
  - MALAISE [None]
